FAERS Safety Report 19869054 (Version 1)
Quarter: 2021Q3

REPORT INFORMATION
  Report Type: Spontaneous
  Country: US (occurrence: US)
  Receive Date: 20210922
  Receipt Date: 20210922
  Transmission Date: 20211014
  Serious: No
  Sender: FDA-Public Use
  Company Number: US-ORGANON-O2109USA001187

PATIENT
  Sex: Female

DRUGS (1)
  1. NEXPLANON [Suspect]
     Active Substance: ETONOGESTREL
     Indication: CONTRACEPTION
     Dosage: 1 IMPLANT, QD
     Route: 059
     Dates: start: 2017

REACTIONS (3)
  - Pain of skin [Unknown]
  - Incorrect product administration duration [Unknown]
  - Fatigue [Unknown]

NARRATIVE: CASE EVENT DATE: 2020
